FAERS Safety Report 24066511 (Version 2)
Quarter: 2024Q3

REPORT INFORMATION
  Report Type: Spontaneous
  Country: US (occurrence: US)
  Receive Date: 20240709
  Receipt Date: 20240722
  Transmission Date: 20241017
  Serious: Yes (Death, Hospitalization, Other)
  Sender: BIOMARIN
  Company Number: US-SA-SAC20240703000282

PATIENT

DRUGS (1)
  1. ALDURAZYME [Suspect]
     Active Substance: LARONIDASE
     Indication: Product used for unknown indication
     Dosage: 26.1 MG, QW
     Route: 042

REACTIONS (1)
  - Small intestinal obstruction [Fatal]
